FAERS Safety Report 12559453 (Version 1)
Quarter: 2016Q3

REPORT INFORMATION
  Report Type: Spontaneous
  Country: US (occurrence: US)
  Receive Date: 20160715
  Receipt Date: 20160715
  Transmission Date: 20161109
  Serious: No
  Sender: FDA-Public Use
  Company Number: US-PFIZER INC-2016313876

PATIENT
  Age: 61 Year
  Sex: Male
  Weight: 99.79 kg

DRUGS (7)
  1. SUPER BETA PROSTATE [Concomitant]
     Active Substance: DIETARY SUPPLEMENT
     Indication: PROSTATIC DISORDER
     Dosage: 2 TABLETS A DAY BY MOUTH
     Route: 048
  2. VITAMIN C [Concomitant]
     Active Substance: ASCORBIC ACID
     Indication: PROPHYLAXIS
     Dosage: 500MG PILL ONCE A DAY BY MOUTH
     Route: 048
  3. VITAMIN B COMPLEX [Concomitant]
     Active Substance: CYANOCOBALAMIN\DEXPANTHENOL\NIACINAMIDE\PYRIDOXINE HYDROCHLORIDE\RIBOFLAVIN 5^-PHOSPHATE SODIUM\THIAMINE HYDROCHLORIDE\VITAMIN B COMPLEX
     Indication: ASTHENIA
     Dosage: 50MG CAPSULE ONCE A DAY BY MOUTH
     Route: 048
  4. TOPROL XL [Concomitant]
     Active Substance: METOPROLOL SUCCINATE
     Indication: HYPERTENSION
     Dosage: 25MG TABLET ONCE A DAY BY MOUTH
     Route: 048
  5. ADVIL [Suspect]
     Active Substance: IBUPROFEN
     Indication: BACK PAIN
     Dosage: 200MG CAPSULE ONE TIME BY MOUTH WITH WATER
     Route: 048
     Dates: start: 20160621
  6. LOSARTAN. [Concomitant]
     Active Substance: LOSARTAN
     Indication: DIURETIC THERAPY
     Dosage: 12.5MG TABLET ONCE A DAY BY MOUTH
     Route: 048
  7. ASPIRIN. [Concomitant]
     Active Substance: ASPIRIN
     Indication: PROPHYLAXIS
     Dosage: 81MG CHEWABLE TABLE ONCE A DAY BY MOUTH
     Route: 048

REACTIONS (1)
  - Muscle spasms [Recovered/Resolved]

NARRATIVE: CASE EVENT DATE: 20160622
